FAERS Safety Report 13653893 (Version 1)
Quarter: 2017Q2

REPORT INFORMATION
  Report Type: Spontaneous
  Country: US (occurrence: US)
  Receive Date: 20170614
  Receipt Date: 20170614
  Transmission Date: 20170830
  Serious: No
  Sender: FDA-Public Use
  Company Number: US-MAYNE PHARMA-2017MYN000635

PATIENT

DRUGS (3)
  1. DORYX [Suspect]
     Active Substance: DOXYCYCLINE HYCLATE
     Indication: IMPETIGO
     Dosage: 200 MG LOADING DOSE ON DAY 1
     Route: 048
     Dates: start: 20170410, end: 20170410
  2. DORYX [Suspect]
     Active Substance: DOXYCYCLINE HYCLATE
     Dosage: 100 MG, QD
     Route: 048
     Dates: start: 20170411
  3. KEFLEX [Concomitant]
     Active Substance: CEPHALEXIN

REACTIONS (2)
  - Product physical issue [Unknown]
  - Therapeutic response delayed [Unknown]

NARRATIVE: CASE EVENT DATE: 201704
